FAERS Safety Report 15888476 (Version 1)
Quarter: 2019Q1

REPORT INFORMATION
  Report Type: Spontaneous
  Country: FR (occurrence: FR)
  Receive Date: 20190130
  Receipt Date: 20190130
  Transmission Date: 20190417
  Serious: Yes (Life-Threatening)
  Sender: FDA-Public Use
  Company Number: FR-TEVA-2019-FR-1004395

PATIENT
  Age: 68 Year
  Sex: Female
  Weight: 84 kg

DRUGS (8)
  1. TRINITRINE [Suspect]
     Active Substance: NITROGLYCERIN
     Indication: PRODUCT USED FOR UNKNOWN INDICATION
     Route: 062
     Dates: end: 20180321
  2. ALDACTAZINE [Suspect]
     Active Substance: ALTHIAZIDE\SPIRONOLACTONE
     Indication: HYPERTENSION
     Dosage: 1 DOSAGE FORMS DAILY;
     Route: 048
     Dates: end: 20180321
  3. PAROXETINE. [Concomitant]
     Active Substance: PAROXETINE
  4. ATORVASTATINE [Concomitant]
     Active Substance: ATORVASTATIN
  5. CHLORHYDRATE DE MEMANTINE [Concomitant]
  6. FLECAINE 100 MG, COMPRIM? S?CABLE [Suspect]
     Active Substance: FLECAINIDE ACETATE
     Indication: PRODUCT USED FOR UNKNOWN INDICATION
     Route: 048
     Dates: end: 20180321
  7. FUROSEMIDE. [Suspect]
     Active Substance: FUROSEMIDE
     Indication: HYPERTENSION
     Dosage: 80 MILLIGRAM DAILY;
     Route: 048
     Dates: end: 20180321
  8. KARDEGIC [Concomitant]
     Active Substance: ASPIRIN DL-LYSINE

REACTIONS (3)
  - Electrocardiogram QT prolonged [Unknown]
  - Acute kidney injury [Recovered/Resolved]
  - Hypokalaemia [Recovered/Resolved]

NARRATIVE: CASE EVENT DATE: 20180321
